FAERS Safety Report 23977769 (Version 2)
Quarter: 2024Q3

REPORT INFORMATION
  Report Type: Spontaneous
  Country: JP (occurrence: None)
  Receive Date: 20240614
  Receipt Date: 20240702
  Transmission Date: 20241016
  Serious: Yes (Other)
  Sender: ASTRAZENECA
  Company Number: 2024A134705

PATIENT
  Age: 72 Year
  Sex: Female

DRUGS (1)
  1. TAGRISSO [Suspect]
     Active Substance: OSIMERTINIB
     Indication: Non-small cell lung cancer
     Route: 048

REACTIONS (2)
  - Metastases to central nervous system [Unknown]
  - Arthropathy [Unknown]

NARRATIVE: CASE EVENT DATE: 20230101
